FAERS Safety Report 13134465 (Version 3)
Quarter: 2017Q2

REPORT INFORMATION
  Report Type: Spontaneous
  Country: US (occurrence: US)
  Receive Date: 20170120
  Receipt Date: 20170403
  Transmission Date: 20170830
  Serious: No
  Sender: FDA-Public Use
  Company Number: US-PFIZER INC-2017024782

PATIENT
  Age: 39 Year
  Sex: Female

DRUGS (3)
  1. REVATIO [Suspect]
     Active Substance: SILDENAFIL CITRATE
     Indication: PULMONARY ARTERIAL HYPERTENSION
     Dosage: 20 MG, 3X/DAY
     Dates: start: 2011
  2. ORENITRAM [Concomitant]
     Active Substance: TREPROSTINIL
     Dosage: 5 MG, 3X/DAY
  3. REVATIO [Suspect]
     Active Substance: SILDENAFIL CITRATE
     Dosage: 40 MG, 3X/DAY
     Dates: start: 2017

REACTIONS (3)
  - Aphonia [Recovered/Resolved]
  - Product use issue [Unknown]
  - Malaise [Recovered/Resolved]
